FAERS Safety Report 6844718-X (Version None)
Quarter: 2010Q3

REPORT INFORMATION
  Report Type: 
  Country: None (occurrence: None)
  Receive Date: 20100715
  Receipt Date: 20100713
  Transmission Date: 20110219
  Serious: Yes (Hospitalization)
  Sender: FDA-Public Use
  Company Number: TW-BRISTOL-MYERS SQUIBB COMPANY-15112634

PATIENT
  Age: 78 Year
  Sex: Male
  Weight: 40 kg

DRUGS (2)
  1. CISPLATIN [Suspect]
     Indication: GASTROOESOPHAGEAL CANCER
     Dosage: RECENT INF 12MAY2010
     Route: 042
     Dates: start: 20100512
  2. CAPECITABINE [Suspect]
     Indication: GASTROOESOPHAGEAL CANCER
     Dosage: ON DAY 1 15.MOST RECENT DOSE ON 15MAY2010 TABS
     Route: 048
     Dates: start: 20100512

REACTIONS (2)
  - HEADACHE [None]
  - NAUSEA [None]
